FAERS Safety Report 9277518 (Version 1)
Quarter: 2013Q2

REPORT INFORMATION
  Report Type: Spontaneous
  Country: FR (occurrence: FR)
  Receive Date: 20130508
  Receipt Date: 20130508
  Transmission Date: 20140414
  Serious: Yes (Hospitalization)
  Sender: FDA-Public Use
  Company Number: FR-JNJFOC-20130417683

PATIENT
  Age: 58 Year
  Sex: Male

DRUGS (7)
  1. STELARA [Suspect]
     Indication: PSORIASIS
     Route: 058
     Dates: start: 20111022, end: 20120922
  2. METHOTREXATE [Suspect]
     Indication: PSORIASIS
     Route: 048
     Dates: start: 2000
  3. LEDERFOLINE [Suspect]
     Indication: PSORIASIS
     Route: 048
     Dates: start: 2000
  4. INDOCID [Suspect]
     Indication: PSORIATIC ARTHROPATHY
     Route: 048
     Dates: start: 2000
  5. CYTOTEC [Suspect]
     Indication: ANTACID THERAPY
     Route: 048
     Dates: start: 2000
  6. ZYLORIC [Suspect]
     Indication: HYPERURICAEMIA
     Route: 048
     Dates: start: 2000
  7. TARKA [Suspect]
     Indication: HYPERTENSION
     Route: 048
     Dates: start: 201206

REACTIONS (1)
  - Nephrolithiasis [Recovered/Resolved]
